FAERS Safety Report 6974863-X (Version None)
Quarter: 2010Q3

REPORT INFORMATION
  Report Type: 
  Country: None (occurrence: None)
  Receive Date: 20100909
  Receipt Date: 20081208
  Transmission Date: 20110219
  Serious: No
  Sender: FDA-Public Use
  Company Number: US-WYE-H07137508

PATIENT
  Age: 42 Year
  Sex: Female
  Weight: 90.8 kg

DRUGS (3)
  1. PRISTIQ [Suspect]
     Indication: DEPRESSION
     Route: 048
     Dates: start: 20080101
  2. PRISTIQ [Suspect]
     Indication: OBSESSIVE-COMPULSIVE DISORDER
     Dosage: PATIENT HAD BEEN ON A ^VARIETY OF DOSES 50, 200, 300, 400 MG OF PRISTIQ SINCE OCTOBER^
     Route: 048
     Dates: start: 20081001
  3. RITALIN [Concomitant]

REACTIONS (3)
  - CHEST PAIN [None]
  - OROPHARYNGEAL PAIN [None]
  - SOMNOLENCE [None]
